FAERS Safety Report 4288561-7 (Version None)
Quarter: 2004Q1

REPORT INFORMATION
  Report Type: 
  Country: None (occurrence: None)
  Receive Date: 20040205
  Receipt Date: 20031014
  Transmission Date: 20041129
  Serious: Yes (Death)
  Sender: FDA-Public Use
  Company Number: 2003AP04378

PATIENT
  Age: 60 Year

DRUGS (3)
  1. LISINOPRIL [Suspect]
  2. THEOPHYLLINE [Suspect]
  3. ETHANOL [Suspect]

REACTIONS (1)
  - COMPLETED SUICIDE [None]
